FAERS Safety Report 8353555-9 (Version None)
Quarter: 2012Q2

REPORT INFORMATION
  Report Type: 
  Country: None (occurrence: None)
  Receive Date: 20120511
  Receipt Date: 20110526
  Transmission Date: 20120825
  Serious: No
  Sender: FDA-Public Use
  Company Number: US-GLAXOSMITHKLINE-A0930296A

PATIENT
  Age: 63 Year
  Sex: Female

DRUGS (5)
  1. ZOMETA [Concomitant]
  2. ATENOLOL [Concomitant]
  3. ALPRAZOLAM [Concomitant]
  4. TYKERB [Suspect]
     Indication: BREAST CANCER
     Dosage: 1250MG PER DAY
     Route: 048
     Dates: start: 20100513
  5. ASPIRIN [Concomitant]

REACTIONS (1)
  - DIARRHOEA [None]
